FAERS Safety Report 6197856-1 (Version None)
Quarter: 2009Q2

REPORT INFORMATION
  Report Type: 
  Country: None (occurrence: None)
  Receive Date: 20090521
  Receipt Date: 20090513
  Transmission Date: 20091009
  Serious: Yes (Hospitalization, Other)
  Sender: FDA-Public Use
  Company Number: US-PFIZER INC-2009212699

PATIENT
  Age: 3 Year
  Sex: Male

DRUGS (1)
  1. DIABINESE [Suspect]
     Dosage: 250 MG, UNK

REACTIONS (4)
  - BLOOD INSULIN INCREASED [None]
  - HYPOGLYCAEMIC COMA [None]
  - OVERDOSE [None]
  - SHOCK HYPOGLYCAEMIC [None]
